FAERS Safety Report 15182659 (Version 1)
Quarter: 2018Q3

REPORT INFORMATION
  Report Type: Spontaneous
  Country: ES (occurrence: ES)
  Receive Date: 20180723
  Receipt Date: 20180723
  Transmission Date: 20181010
  Serious: Yes (Hospitalization)
  Sender: FDA-Public Use
  Company Number: PHHY2018ES048255

PATIENT
  Age: 85 Year
  Sex: Female
  Weight: 83 kg

DRUGS (9)
  1. FOSAVANCE [Concomitant]
     Active Substance: ALENDRONATE SODIUM\CHOLECALCIFEROL
     Indication: PRODUCT USED FOR UNKNOWN INDICATION
     Dosage: 1 (70MG/5.600 IU) DF (UG/LITRE), QW
     Route: 048
     Dates: end: 20171108
  2. NAPROXENO [Suspect]
     Active Substance: NAPROXEN
     Indication: MUSCULOSKELETAL CHEST PAIN
     Dosage: 500 MG, QD
     Route: 048
     Dates: start: 20171101, end: 20171102
  3. HYDROCHLOROTHIAZIDE. [Concomitant]
     Active Substance: HYDROCHLOROTHIAZIDE
     Indication: HYPERTENSION
     Dosage: 1 DF (UG/LITRE), QD
     Route: 048
     Dates: end: 20171108
  4. FOSTER [Concomitant]
     Active Substance: BECLOMETHASONE\FORMOTEROL
     Indication: PRODUCT USED FOR UNKNOWN INDICATION
     Dosage: 1 DF (UG/LITRE), Q12H
     Route: 055
  5. NOLOTIL [Concomitant]
     Indication: PRODUCT USED FOR UNKNOWN INDICATION
     Dosage: 575 MG, Q8H
     Route: 048
  6. VESICARE [Concomitant]
     Active Substance: SOLIFENACIN SUCCINATE
     Indication: PRODUCT USED FOR UNKNOWN INDICATION
     Dosage: 5 MG, QD
     Route: 048
  7. IBUPROFEN. [Suspect]
     Active Substance: IBUPROFEN
     Indication: MUSCULOSKELETAL CHEST PAIN
     Dosage: 600 MG, Q6H
     Route: 048
     Dates: start: 20171101, end: 20171102
  8. SIMVASTATINA [Concomitant]
     Active Substance: SIMVASTATIN
     Indication: HYPERCHOLESTEROLAEMIA
     Dosage: 20 MG, QD
     Route: 048
     Dates: end: 20171108
  9. PARACETAMOL [Concomitant]
     Active Substance: ACETAMINOPHEN
     Indication: PRODUCT USED FOR UNKNOWN INDICATION
     Dosage: 1 G, Q8H
     Route: 048

REACTIONS (4)
  - Nausea [Recovered/Resolved]
  - Haematemesis [Recovered/Resolved]
  - Abdominal pain upper [Recovered/Resolved]
  - Vomiting [Recovered/Resolved]

NARRATIVE: CASE EVENT DATE: 20171102
